FAERS Safety Report 9948134 (Version 1)
Quarter: 2014Q1

REPORT INFORMATION
  Report Type: Report from Study
  Country: US (occurrence: US)
  Receive Date: 20140303
  Receipt Date: 20140303
  Transmission Date: 20141002
  Serious: No
  Sender: FDA-Public Use
  Company Number: US-ABBVIE-13P-163-1060861-00

PATIENT
  Age: 16 Year
  Sex: Male
  Weight: 52.21 kg

DRUGS (5)
  1. HUMIRA [Suspect]
     Indication: CROHN^S DISEASE
     Route: 058
     Dates: start: 201212, end: 201212
  2. HUMIRA [Suspect]
     Route: 058
     Dates: start: 201301, end: 201301
  3. HUMIRA [Suspect]
     Route: 058
     Dates: start: 201301
  4. IMURAN [Concomitant]
     Indication: CROHN^S DISEASE
  5. SULFASALAZINE [Concomitant]
     Indication: CROHN^S DISEASE

REACTIONS (4)
  - Off label use [Unknown]
  - Injection site pain [Not Recovered/Not Resolved]
  - Pruritus [Recovered/Resolved]
  - Lip swelling [Recovered/Resolved]
